FAERS Safety Report 14027165 (Version 5)
Quarter: 2019Q1

REPORT INFORMATION
  Report Type: Report from Study
  Country: None (occurrence: US)
  Receive Date: 20170930
  Receipt Date: 20190309
  Transmission Date: 20190417
  Serious: Yes (Other)
  Sender: FDA-Public Use
  Company Number: US-ABBVIE-17K-163-2093245-00

PATIENT
  Age: 45 Year
  Sex: Male

DRUGS (9)
  1. HYDROCHLOROTHIAZIDE. [Concomitant]
     Active Substance: HYDROCHLOROTHIAZIDE
     Indication: HYPERTENSION
  2. HUMIRA [Suspect]
     Active Substance: ADALIMUMAB
     Route: 058
     Dates: start: 201708
  3. HUMIRA [Suspect]
     Active Substance: ADALIMUMAB
     Indication: RHEUMATOID ARTHRITIS
     Route: 058
     Dates: start: 201503, end: 2017
  4. METFORMIN [Concomitant]
     Active Substance: METFORMIN HYDROCHLORIDE
     Indication: DIABETES MELLITUS
  5. NABUMETONE. [Concomitant]
     Active Substance: NABUMETONE
     Indication: PAIN
  6. ALLOPURINOL. [Concomitant]
     Active Substance: ALLOPURINOL
     Indication: GOUT
  7. GABAPENTIN. [Concomitant]
     Active Substance: GABAPENTIN
     Indication: NEURALGIA
  8. LISINOPRIL. [Concomitant]
     Active Substance: LISINOPRIL
     Indication: HYPERTENSION
  9. DULOXETINE. [Concomitant]
     Active Substance: DULOXETINE
     Indication: PAIN

REACTIONS (19)
  - Skin mass [Recovering/Resolving]
  - Chest pain [Unknown]
  - Injection site pain [Not Recovered/Not Resolved]
  - Gout [Unknown]
  - Influenza [Unknown]
  - Spinal osteoarthritis [Not Recovered/Not Resolved]
  - Peripheral swelling [Unknown]
  - Mobility decreased [Recovering/Resolving]
  - Arthritis [Not Recovered/Not Resolved]
  - Intervertebral disc disorder [Not Recovered/Not Resolved]
  - Skin induration [Recovering/Resolving]
  - Sinusitis [Unknown]
  - Carpal tunnel syndrome [Not Recovered/Not Resolved]
  - Arthritis [Recovered/Resolved]
  - Hypoaesthesia [Recovering/Resolving]
  - Intervertebral disc protrusion [Recovering/Resolving]
  - Body fat disorder [Recovered/Resolved]
  - Osteoarthritis [Not Recovered/Not Resolved]
  - Ear infection [Unknown]

NARRATIVE: CASE EVENT DATE: 201506
